FAERS Safety Report 7481712-2 (Version None)
Quarter: 2011Q2

REPORT INFORMATION
  Report Type: 
  Country: None (occurrence: None)
  Receive Date: 20110516
  Receipt Date: 20110506
  Transmission Date: 20111010
  Serious: Yes (Death)
  Sender: FDA-Public Use
  Company Number: A0785167A

PATIENT
  Age: 52 Year
  Sex: Male
  Weight: 113.6 kg

DRUGS (6)
  1. AMARYL [Concomitant]
  2. PRAVACHOL [Concomitant]
  3. LIPITOR [Concomitant]
  4. VICODIN [Concomitant]
  5. GLUCOPHAGE [Concomitant]
  6. AVANDIA [Suspect]
     Indication: DIABETES MELLITUS
     Dosage: 8MG PER DAY
     Route: 048
     Dates: end: 20041027

REACTIONS (5)
  - CONGESTIVE CARDIOMYOPATHY [None]
  - VENTRICULAR FIBRILLATION [None]
  - MYOCARDIAL ISCHAEMIA [None]
  - CARDIAC ARREST [None]
  - CARDIOMEGALY [None]
